FAERS Safety Report 6869215-7 (Version None)
Quarter: 2010Q3

REPORT INFORMATION
  Report Type: 
  Country: None (occurrence: None)
  Receive Date: 20100722
  Receipt Date: 20080904
  Transmission Date: 20110219
  Serious: Yes (Hospitalization, Other)
  Sender: FDA-Public Use
  Company Number: US-PFIZER INC-2008056908

PATIENT
  Sex: Male
  Weight: 136.08 kg

DRUGS (2)
  1. CHANTIX [Suspect]
     Indication: SMOKING CESSATION THERAPY
     Route: 048
  2. CHANTIX [Suspect]
     Indication: TOBACCO USER

REACTIONS (2)
  - DEPRESSED MOOD [None]
  - DRUG INEFFECTIVE [None]
